FAERS Safety Report 19332103 (Version 1)
Quarter: 2021Q2

REPORT INFORMATION
  Report Type: Spontaneous
  Country: US (occurrence: US)
  Receive Date: 20210529
  Receipt Date: 20210529
  Transmission Date: 20210717
  Serious: No
  Sender: FDA-Public Use
  Company Number: US-GLAXOSMITHKLINE-US2021107355

PATIENT
  Sex: Female

DRUGS (1)
  1. NUCALA [Suspect]
     Active Substance: MEPOLIZUMAB
     Indication: ASTHMA
     Dosage: 1 DF

REACTIONS (5)
  - Accidental underdose [Unknown]
  - Injection site bruising [Recovering/Resolving]
  - Injection site discolouration [Recovered/Resolved]
  - Wrong technique in device usage process [Unknown]
  - Fear [Unknown]
